FAERS Safety Report 9586193 (Version 3)
Quarter: 2014Q1

REPORT INFORMATION
  Report Type: Report from Study
  Country: GB (occurrence: GB)
  Receive Date: 20131003
  Receipt Date: 20140205
  Transmission Date: 20141002
  Serious: Yes (Hospitalization)
  Sender: FDA-Public Use
  Company Number: GB-MILLENNIUM PHARMACEUTICALS, INC.-2013JNJ000376

PATIENT
  Sex: 0

DRUGS (9)
  1. VELCADE [Suspect]
     Indication: B-CELL LYMPHOMA
     Dosage: 2.3 MG, UNK
     Route: 065
     Dates: start: 20130903, end: 20130903
  2. CYCLOPHOSPHAMIDE [Suspect]
     Indication: B-CELL LYMPHOMA
     Dosage: 1300 MG, UNK
     Route: 065
     Dates: start: 20130816, end: 20130903
  3. DOXORUBICIN [Suspect]
     Indication: B-CELL LYMPHOMA
     Dosage: 88 MG, UNK
     Route: 065
     Dates: start: 20130816, end: 20130903
  4. PREDNISOLONE [Suspect]
     Indication: B-CELL LYMPHOMA
     Dosage: 100 MG, UNK
     Route: 065
     Dates: start: 20130815, end: 20130903
  5. RITUXIMAB [Suspect]
     Indication: B-CELL LYMPHOMA
     Dosage: 650 MG, UNK
     Route: 065
     Dates: start: 20130815, end: 20130903
  6. VINCRISTINE [Suspect]
     Indication: B-CELL LYMPHOMA
     Dosage: 2 MG, UNK
     Route: 065
     Dates: start: 20130816, end: 20130903
  7. FLUOXETINE [Concomitant]
     Dosage: 100 MG, UNK
     Route: 048
  8. CO-TRIMOXAZOLE [Concomitant]
     Dosage: 960 MG, UNK
     Dates: start: 20130815
  9. FLUCONAZOLE [Concomitant]
     Dosage: 100 MG, UNK
     Dates: start: 20130815

REACTIONS (1)
  - Clostridium difficile colitis [Recovered/Resolved]
